FAERS Safety Report 17554582 (Version 2)
Quarter: 2020Q2

REPORT INFORMATION
  Report Type: Spontaneous
  Country: IT (occurrence: IT)
  Receive Date: 20200318
  Receipt Date: 20200508
  Transmission Date: 20200713
  Serious: Yes (Disabling)
  Sender: FDA-Public Use
  Company Number: IT-ACCORD-176254

PATIENT
  Age: 68 Year
  Sex: Male

DRUGS (5)
  1. NOVONORM [Concomitant]
     Active Substance: REPAGLINIDE
     Indication: DIABETES MELLITUS
  2. PEMETREXED. [Suspect]
     Active Substance: PEMETREXED
     Indication: LUNG ADENOCARCINOMA
     Route: 042
     Dates: start: 20180906, end: 20180906
  3. CARDICOR [Concomitant]
     Active Substance: BISOPROLOL
  4. CORLENTOR [Concomitant]
     Active Substance: IVABRADINE HYDROCHLORIDE
     Dosage: STRENGTH: 7.5 MG
  5. CARBOPLATIN. [Suspect]
     Active Substance: CARBOPLATIN
     Indication: LUNG ADENOCARCINOMA
     Route: 042
     Dates: start: 20180906, end: 20180906

REACTIONS (4)
  - Thrombocytopenia [Recovered/Resolved with Sequelae]
  - Extremity necrosis [Recovered/Resolved with Sequelae]
  - Leg amputation [Recovered/Resolved with Sequelae]
  - Haematoma [Recovered/Resolved with Sequelae]

NARRATIVE: CASE EVENT DATE: 20180917
